FAERS Safety Report 4361622-X (Version None)
Quarter: 2004Q2

REPORT INFORMATION
  Report Type: 
  Country: None (occurrence: None)
  Receive Date: 20040521
  Receipt Date: 20040412
  Transmission Date: 20050107
  Serious: No
  Sender: FDA-Public Use
  Company Number: US-GLAXOSMITHKLINE-A0506845A

PATIENT

DRUGS (2)
  1. WELLBUTRIN [Suspect]
     Indication: ILL-DEFINED DISORDER
     Route: 048
  2. EFFEXOR [Suspect]

REACTIONS (1)
  - HYPERTENSION [None]
